FAERS Safety Report 8004145-9 (Version None)
Quarter: 2011Q4

REPORT INFORMATION
  Report Type: 
  Country: None (occurrence: None)
  Receive Date: 20111223
  Receipt Date: 20111212
  Transmission Date: 20120403
  Serious: Yes (Hospitalization)
  Sender: FDA-Public Use
  Company Number: ES-AMGEN-ESPSP2011067784

PATIENT
  Sex: Female

DRUGS (3)
  1. FENTANYL [Concomitant]
     Dosage: 100 UG, UNK
  2. ENBREL [Suspect]
     Indication: ANKYLOSING SPONDYLITIS
     Dosage: UNK
     Dates: start: 20110101, end: 20111201
  3. FENTANYL [Concomitant]
     Dosage: 50 UG, UNK

REACTIONS (4)
  - DIZZINESS [None]
  - HEADACHE [None]
  - NAUSEA [None]
  - BLINDNESS [None]
